FAERS Safety Report 18970090 (Version 1)
Quarter: 2021Q1

REPORT INFORMATION
  Report Type: Spontaneous
  Country: ES (occurrence: ES)
  Receive Date: 20210304
  Receipt Date: 20210304
  Transmission Date: 20210420
  Serious: Yes (Other)
  Sender: FDA-Public Use
  Company Number: ES-GILEAD-2021-0519638

PATIENT
  Age: 41 Year
  Sex: Male
  Weight: 56.7 kg

DRUGS (1)
  1. YESCARTA [Suspect]
     Active Substance: AXICABTAGENE CILOLEUCEL
     Indication: DIFFUSE LARGE B-CELL LYMPHOMA
     Dosage: UNK
     Route: 042
     Dates: start: 20201014, end: 20201014

REACTIONS (2)
  - Cytokine release syndrome [Recovered/Resolved]
  - Hypofibrinogenaemia [Unknown]

NARRATIVE: CASE EVENT DATE: 20201018
